FAERS Safety Report 5462916-7 (Version None)
Quarter: 2007Q3

REPORT INFORMATION
  Report Type: 
  Country: None (occurrence: None)
  Receive Date: 20070920
  Receipt Date: 20070627
  Transmission Date: 20080115
  Serious: No
  Sender: FDA-Public Use
  Company Number: US-BAUSCH-2007BL002181

PATIENT
  Age: 46 Year
  Sex: Female

DRUGS (2)
  1. ALAWAY [Suspect]
     Indication: SEASONAL ALLERGY
     Route: 047
     Dates: start: 20070619, end: 20070620
  2. ZYRTEC [Concomitant]
     Indication: SEASONAL ALLERGY
     Route: 048
     Dates: start: 20070607

REACTIONS (1)
  - DRUG INEFFECTIVE [None]
